FAERS Safety Report 5150408-4 (Version None)
Quarter: 2006Q4

REPORT INFORMATION
  Report Type: 
  Country: None (occurrence: None)
  Receive Date: 20061114
  Receipt Date: 20060919
  Transmission Date: 20070319
  Serious: Yes (Hospitalization)
  Sender: FDA-Public Use
  Company Number: US-ROCHE-464171

PATIENT
  Age: 48 Year
  Sex: Male

DRUGS (7)
  1. PEGASYS [Suspect]
     Indication: HEPATITIS C
     Route: 058
     Dates: start: 20060812
  2. RIBASPHERE [Suspect]
     Indication: HEPATITIS C
     Route: 048
     Dates: start: 20060812
  3. CELEXA [Concomitant]
     Indication: DEPRESSION
     Route: 048
  4. TRAZODONE HCL [Concomitant]
     Indication: INSOMNIA
     Route: 048
  5. XANAX [Concomitant]
     Indication: INSOMNIA
     Route: 048
  6. VALIUM [Concomitant]
     Indication: INSOMNIA
     Dates: start: 20060915
  7. REMERON [Concomitant]
     Indication: DEPRESSION
     Route: 048
     Dates: start: 20060901

REACTIONS (11)
  - ANXIETY [None]
  - EATING DISORDER [None]
  - FAECAL INCONTINENCE [None]
  - GRAND MAL CONVULSION [None]
  - HEART RATE INCREASED [None]
  - INSOMNIA [None]
  - PAIN [None]
  - RASH [None]
  - SELF-MEDICATION [None]
  - URINARY INCONTINENCE [None]
  - WEIGHT DECREASED [None]
